FAERS Safety Report 7344751 (Version 23)
Quarter: 2014Q1

REPORT INFORMATION
  Report Type: Report from Study
  Country: CA (occurrence: CA)
  Receive Date: 20100405
  Receipt Date: 20140106
  Transmission Date: 20141002
  Serious: Yes (Death, Other)
  Sender: FDA-Public Use
  Company Number: PHHY2010CA16430

PATIENT
  Age: 55 Year
  Sex: Male

DRUGS (9)
  1. SANDOSTATIN [Suspect]
     Indication: NEUROENDOCRINE TUMOUR
     Dosage: UNK UKN, UNK
     Route: 058
     Dates: end: 2008
  2. SANDOSTATIN [Suspect]
     Dosage: 100 UG, TID
     Route: 058
     Dates: start: 20100301
  3. SANDOSTATIN LAR [Suspect]
     Indication: NEUROENDOCRINE TUMOUR
     Dosage: 30 MG, EVERY 4 WEEKS
     Route: 030
     Dates: start: 20100313
  4. SANDOSTATIN LAR [Suspect]
     Dosage: 30 MG, EVERY 4 WEEKS
     Route: 030
  5. SANDOSTATIN LAR [Suspect]
     Dosage: 40 MG, EVERY 4 WEEK
     Route: 030
  6. SANDOSTATIN LAR [Suspect]
     Dosage: 60 MG, EVERY 4 WEEKS
     Route: 030
  7. MORPHINE [Concomitant]
     Indication: PAIN
     Dosage: UNK UKN, UNK
  8. ANTIBIOTICS [Concomitant]
     Dosage: UNK UKN, UNK
     Dates: end: 20120809
  9. ATIVAN [Concomitant]
     Dosage: UNK UKN, UNK

REACTIONS (45)
  - Death [Fatal]
  - Diplegia [Unknown]
  - Haemorrhoids [Unknown]
  - Visual impairment [Unknown]
  - Vision blurred [Unknown]
  - Malignant neoplasm progression [Unknown]
  - Gastrointestinal neoplasm [Unknown]
  - Abdominal mass [Unknown]
  - Abdominal pain [Unknown]
  - Metastases to liver [Not Recovered/Not Resolved]
  - Metastases to spleen [Unknown]
  - Diarrhoea [Unknown]
  - Depressed mood [Unknown]
  - Dysphonia [Unknown]
  - Flushing [Unknown]
  - Arthralgia [Unknown]
  - Pain in extremity [Unknown]
  - Faecal volume increased [Unknown]
  - Lacrimation increased [Unknown]
  - Skin plaque [Unknown]
  - Nasopharyngitis [Recovered/Resolved]
  - Hot flush [Unknown]
  - Pyrexia [Recovered/Resolved]
  - Cough [Unknown]
  - Productive cough [Unknown]
  - Quality of life decreased [Unknown]
  - Back pain [Recovered/Resolved]
  - Myalgia [Recovered/Resolved]
  - Nervousness [Unknown]
  - Insomnia [Unknown]
  - Blood pressure increased [Unknown]
  - Local swelling [Unknown]
  - Haematochezia [Unknown]
  - Abnormal faeces [Unknown]
  - Pruritus [Unknown]
  - Decreased appetite [Unknown]
  - Fatigue [Unknown]
  - Vomiting [Unknown]
  - Nausea [Unknown]
  - Constipation [Unknown]
  - Asthenia [Unknown]
  - Abdominal pain lower [Unknown]
  - Abdominal distension [Unknown]
  - Injection site pain [Unknown]
  - Drug ineffective [Unknown]
